FAERS Safety Report 9692022 (Version 1)
Quarter: 2013Q4

REPORT INFORMATION
  Report Type: Spontaneous
  Country: US (occurrence: US)
  Receive Date: 20131118
  Receipt Date: 20131118
  Transmission Date: 20140711
  Serious: No
  Sender: FDA-Public Use
  Company Number: US-BIOGENIDEC-2013BI107768

PATIENT
  Sex: Female

DRUGS (1)
  1. TYSABRI [Suspect]
     Indication: MULTIPLE SCLEROSIS
     Route: 042
     Dates: start: 20120824

REACTIONS (7)
  - Memory impairment [Unknown]
  - Gait disturbance [Unknown]
  - Facial pain [Unknown]
  - Blepharospasm [Unknown]
  - Hypoaesthesia [Unknown]
  - Fatigue [Unknown]
  - Multiple sclerosis [Unknown]
